FAERS Safety Report 15279007 (Version 4)
Quarter: 2019Q1

REPORT INFORMATION
  Report Type: Spontaneous
  Country: US (occurrence: US)
  Receive Date: 20180815
  Receipt Date: 20190130
  Transmission Date: 20190417
  Serious: No
  Sender: FDA-Public Use
  Company Number: US-BIOGEN-2018BI00620898

PATIENT
  Sex: Female

DRUGS (1)
  1. SPINRAZA [Suspect]
     Active Substance: NUSINERSEN
     Indication: SPINAL MUSCULAR ATROPHY
     Route: 065

REACTIONS (8)
  - Musculoskeletal pain [Unknown]
  - Post lumbar puncture syndrome [Unknown]
  - Muscle spasms [Unknown]
  - Coccydynia [Unknown]
  - Nausea [Unknown]
  - Procedural pain [Recovered/Resolved]
  - Dizziness [Unknown]
  - Neuralgia [Unknown]
